FAERS Safety Report 9307408 (Version 5)
Quarter: 2013Q4

REPORT INFORMATION
  Report Type: Report from Study
  Country: CA (occurrence: CA)
  Receive Date: 20130524
  Receipt Date: 20131205
  Transmission Date: 20140711
  Serious: Yes (Hospitalization, Other)
  Sender: FDA-Public Use
  Company Number: CA-ROCHE-1227271

PATIENT
  Age: 73 Year
  Sex: Male
  Weight: 74 kg

DRUGS (11)
  1. BEVACIZUMAB [Suspect]
     Indication: COLORECTAL CANCER METASTATIC
     Route: 042
     Dates: start: 20130214, end: 20130515
  2. OXALIPLATIN [Suspect]
     Indication: COLORECTAL CANCER METASTATIC
     Route: 042
     Dates: start: 20130214, end: 20130515
  3. LEUCOVORIN CALCIUM [Suspect]
     Indication: COLORECTAL CANCER METASTATIC
     Route: 042
     Dates: start: 20130214, end: 20130515
  4. FLUOROURACIL [Suspect]
     Indication: COLORECTAL CANCER METASTATIC
     Route: 040
     Dates: start: 20130214, end: 20130515
  5. FLUOROURACIL [Suspect]
     Route: 042
     Dates: start: 20130214, end: 20130215
  6. FLUOROURACIL [Suspect]
     Route: 042
     Dates: end: 20130515
  7. ASA [Suspect]
     Indication: PRODUCT USED FOR UNKNOWN INDICATION
     Route: 065
  8. CARBOLITH [Concomitant]
     Route: 065
     Dates: start: 2003
  9. ATORVASTATIN [Concomitant]
     Route: 065
     Dates: start: 2009
  10. COVERSYL PLUS (CANADA) [Concomitant]
     Route: 065
     Dates: start: 2009
  11. SEROQUEL [Concomitant]
     Route: 065
     Dates: start: 20130426

REACTIONS (8)
  - Renal failure acute [Recovered/Resolved]
  - Dehydration [Recovered/Resolved]
  - Thrombotic thrombocytopenic purpura [Recovered/Resolved]
  - Delirium [Recovered/Resolved]
  - Confusional state [Recovered/Resolved]
  - Blood lactate dehydrogenase increased [Unknown]
  - Haemoglobin decreased [Unknown]
  - White blood cell count increased [Unknown]
